FAERS Safety Report 21601285 (Version 6)
Quarter: 2022Q4

REPORT INFORMATION
  Report Type: Spontaneous
  Country: PT (occurrence: PT)
  Receive Date: 20221116
  Receipt Date: 20221229
  Transmission Date: 20230112
  Serious: Yes (Hospitalization, Other)
  Sender: FDA-Public Use
  Company Number: PT-MOLTENI-2022ML000564

PATIENT
  Age: 81 Year
  Sex: Male

DRUGS (7)
  1. BUPRENORPHINE [Interacting]
     Active Substance: BUPRENORPHINE
     Indication: Pain
     Dosage: UNK
     Route: 062
  2. GABAPENTIN [Interacting]
     Active Substance: GABAPENTIN
     Indication: Phantom limb syndrome
     Dosage: UNK
     Route: 048
  3. GABAPENTIN [Interacting]
     Active Substance: GABAPENTIN
     Dosage: UNK(SOS)
     Route: 065
  4. MORPHINE [Interacting]
     Active Substance: MORPHINE
     Indication: Phantom limb syndrome
     Dosage: UNK(SOS)
     Route: 048
  5. MORPHINE [Interacting]
     Active Substance: MORPHINE
     Indication: Pain
  6. BUPRENORPHINE [Concomitant]
     Active Substance: BUPRENORPHINE
     Indication: Phantom limb syndrome
     Dosage: UNK
     Route: 062
  7. BUPRENORPHINE [Concomitant]
     Active Substance: BUPRENORPHINE
     Indication: Pain

REACTIONS (5)
  - Pyrexia [Recovered/Resolved]
  - Confusional state [Recovering/Resolving]
  - Drug interaction [Recovered/Resolved]
  - Labelled drug-drug interaction issue [Recovered/Resolved]
  - Potentiating drug interaction [Unknown]
